FAERS Safety Report 9343308 (Version 3)
Quarter: 2013Q3

REPORT INFORMATION
  Report Type: Report from Study
  Country: AR (occurrence: AR)
  Receive Date: 20130612
  Receipt Date: 20130716
  Transmission Date: 20140515
  Serious: Yes (Other)
  Sender: FDA-Public Use
  Company Number: AR-ROCHE-1235395

PATIENT
  Age: 91 Year
  Sex: Female

DRUGS (2)
  1. LUCENTIS [Suspect]
     Indication: AGE-RELATED MACULAR DEGENERATION
     Route: 050
     Dates: start: 2006
  2. LUCENTIS [Suspect]
     Route: 050
     Dates: start: 2012, end: 201207

REACTIONS (4)
  - Blindness [Not Recovered/Not Resolved]
  - Intraocular pressure increased [Not Recovered/Not Resolved]
  - Visual acuity reduced [Recovering/Resolving]
  - Dizziness [Not Recovered/Not Resolved]
